FAERS Safety Report 6906920-8 (Version None)
Quarter: 2010Q3

REPORT INFORMATION
  Report Type: 
  Country: None (occurrence: None)
  Receive Date: 20100804
  Receipt Date: 20100723
  Transmission Date: 20110219
  Serious: Yes (Other)
  Sender: FDA-Public Use
  Company Number: BR-GENENTECH-304752

PATIENT
  Sex: Female
  Weight: 60 kg

DRUGS (10)
  1. RITUXIMAB [Suspect]
     Indication: RHEUMATOID ARTHRITIS
     Dosage: 1000 MG, UNK
     Route: 065
     Dates: start: 20100610
  2. RITUXIMAB [Suspect]
     Dosage: UNK
     Route: 065
     Dates: start: 20100624, end: 20100624
  3. GESTODENE [Concomitant]
     Indication: CONTRACEPTION
     Dosage: UNK
  4. VALERIANE [Concomitant]
     Indication: SEDATION
     Dosage: UNK
  5. IBUPROFEN [Concomitant]
     Indication: PRODUCT USED FOR UNKNOWN INDICATION
     Dosage: 300 MG, UNK
  6. DAFORIN [Concomitant]
     Indication: PRODUCT USED FOR UNKNOWN INDICATION
     Dosage: 20 MG, UNK
  7. SILYMARIN [Concomitant]
     Indication: PRODUCT USED FOR UNKNOWN INDICATION
     Dosage: 70 MG, UNK
  8. METHIONINE [Concomitant]
     Indication: PRODUCT USED FOR UNKNOWN INDICATION
     Dosage: 100 MG, UNK
  9. COLLAGEN [Concomitant]
     Indication: PRODUCT USED FOR UNKNOWN INDICATION
     Dosage: UNK
  10. GELATIN [Concomitant]
     Indication: PRODUCT USED FOR UNKNOWN INDICATION
     Dosage: UNK

REACTIONS (13)
  - AGITATION [None]
  - BURNING SENSATION [None]
  - DEPRESSION [None]
  - GINGIVAL DISORDER [None]
  - GINGIVAL PRURITUS [None]
  - HYPERSENSITIVITY [None]
  - LIP DISCOLOURATION [None]
  - MALAISE [None]
  - SKIN DISCOLOURATION [None]
  - SOMNOLENCE [None]
  - THROAT IRRITATION [None]
  - TREMOR [None]
  - URTICARIA [None]
